FAERS Safety Report 7225795-3 (Version None)
Quarter: 2011Q1

REPORT INFORMATION
  Report Type: 
  Country: None (occurrence: None)
  Receive Date: 20110113
  Receipt Date: 20110106
  Transmission Date: 20110831
  Serious: Yes (Hospitalization)
  Sender: FDA-Public Use
  Company Number: AU-PFIZER INC-2011007654

PATIENT

DRUGS (3)
  1. NEULASTA [Suspect]
     Indication: CHEMOTHERAPY
     Dosage: 6 MG, QD
     Route: 058
     Dates: start: 20100816
  2. CYCLOPHOSPHAMIDE [Suspect]
     Dosage: UNK
     Dates: start: 20100414, end: 20100812
  3. EPIRUBICIN HYDROCHLORIDE [Suspect]
     Dosage: UNK
     Dates: start: 20100414, end: 20100812

REACTIONS (6)
  - NEUTROPENIA [None]
  - LEUKOPENIA [None]
  - MALAISE [None]
  - THROMBOCYTOPENIA [None]
  - DISEASE PROGRESSION [None]
  - ASTHENIA [None]
